FAERS Safety Report 23486816 (Version 1)
Quarter: 2024Q1

REPORT INFORMATION
  Report Type: Spontaneous
  Country: US (occurrence: US)
  Receive Date: 20240206
  Receipt Date: 20240206
  Transmission Date: 20240410
  Serious: Yes (Other)
  Sender: FDA-Public Use
  Company Number: US-PFIZER INC-PV202400015061

PATIENT
  Age: 80 Year
  Sex: Female

DRUGS (1)
  1. ENALAPRILAT [Suspect]
     Active Substance: ENALAPRILAT
     Dosage: UNK

REACTIONS (3)
  - Anaphylactic reaction [Unknown]
  - Rash [Unknown]
  - Pruritus [Unknown]
